FAERS Safety Report 8396578-6 (Version None)
Quarter: 2012Q2

REPORT INFORMATION
  Report Type: 
  Country: None (occurrence: None)
  Receive Date: 20120530
  Receipt Date: 20120522
  Transmission Date: 20120825
  Serious: Yes (Hospitalization)
  Sender: FDA-Public Use
  Company Number: US-DX529-2012DX000110

PATIENT
  Age: 39 Year
  Sex: Female
  Weight: 70.31 kg

DRUGS (4)
  1. ZOFRAN [Concomitant]
     Indication: NAUSEA
     Route: 030
     Dates: start: 20120427, end: 20120428
  2. ZOFRAN [Concomitant]
     Indication: DEHYDRATION
     Route: 030
     Dates: start: 20120427, end: 20120428
  3. KALBITOR [Suspect]
     Indication: HEREDITARY ANGIOEDEMA
     Route: 058
     Dates: start: 20120427, end: 20120427
  4. ZOFRAN [Concomitant]
     Indication: VOMITING
     Route: 030
     Dates: start: 20120427, end: 20120428

REACTIONS (3)
  - HEREDITARY ANGIOEDEMA [None]
  - GASTROENTERITIS [None]
  - ANAPHYLACTIC SHOCK [None]
